FAERS Safety Report 4434290-6 (Version None)
Quarter: 2004Q3

REPORT INFORMATION
  Report Type: 
  Country: None (occurrence: None)
  Receive Date: 20040825
  Receipt Date: 20040812
  Transmission Date: 20050211
  Serious: Yes (Hospitalization, Other)
  Sender: FDA-Public Use
  Company Number: 2004055791

PATIENT
  Age: 78 Year
  Sex: Female
  Weight: 82 kg

DRUGS (7)
  1. ATORVASTATIN CALCIUM [Suspect]
     Indication: HYPERLIPIDAEMIA
     Dosage: 80 MG (1 IN 1 D), ORAL
     Route: 048
     Dates: start: 20040225, end: 20040316
  2. QUINAPRIL HCL [Concomitant]
  3. AMLODIPINE BESYLATE [Concomitant]
  4. BISOPROLOL FUMARATE [Concomitant]
  5. ESOMEPRAZOLE (ESOMEPRAZOLE) [Concomitant]
  6. ASPIRIN [Concomitant]
  7. CLOPIDOGREL BISULFATE [Concomitant]

REACTIONS (11)
  - ANTINUCLEAR ANTIBODY POSITIVE [None]
  - ASTHENIA [None]
  - BLOOD CREATININE INCREASED [None]
  - CHILLS [None]
  - DIARRHOEA [None]
  - FAECES DISCOLOURED [None]
  - HEPATITIS CHOLESTATIC [None]
  - KLEBSIELLA INFECTION [None]
  - PYREXIA [None]
  - SERRATIA INFECTION [None]
  - TREMOR [None]
